FAERS Safety Report 6235142-1 (Version None)
Quarter: 2009Q2

REPORT INFORMATION
  Report Type: 
  Country: None (occurrence: None)
  Receive Date: 20090618
  Receipt Date: 20090616
  Transmission Date: 20091009
  Serious: Yes (Hospitalization)
  Sender: FDA-Public Use
  Company Number: FR-TEVA-198508ISR

PATIENT
  Age: 60 Year
  Sex: Male

DRUGS (2)
  1. VERAPAMIL [Suspect]
  2. CLOPIDOGREL [Concomitant]

REACTIONS (3)
  - GASTROINTESTINAL ISCHAEMIA [None]
  - OVERDOSE [None]
  - SUICIDE ATTEMPT [None]
